FAERS Safety Report 4753876-2 (Version None)
Quarter: 2005Q3

REPORT INFORMATION
  Report Type: 
  Country: None (occurrence: None)
  Receive Date: 20050823
  Receipt Date: 20050427
  Transmission Date: 20060218
  Serious: No
  Sender: FDA-Public Use
  Company Number: 214104

PATIENT
  Sex: Female

DRUGS (2)
  1. RAPTIVA [Suspect]
     Indication: PSORIASIS
     Dosage: 0.5ML 1/WEEK SUBCUTANEOUS
     Route: 058
  2. GEODON [Concomitant]

REACTIONS (1)
  - COLITIS ULCERATIVE [None]
